FAERS Safety Report 4775096-8 (Version None)
Quarter: 2005Q3

REPORT INFORMATION
  Report Type: 
  Country: None (occurrence: None)
  Receive Date: 20050921
  Receipt Date: 20050802
  Transmission Date: 20060218
  Serious: Yes (Death, Hospitalization)
  Sender: FDA-Public Use
  Company Number: US-ABBOTT-05P-163-0307344-00

PATIENT
  Sex: Female
  Weight: 93.978 kg

DRUGS (16)
  1. HUMIRA [Suspect]
     Indication: RHEUMATOID ARTHRITIS
     Route: 058
     Dates: start: 20041019, end: 20050301
  2. FUROSEMIDE [Concomitant]
     Indication: HYPERTENSION
     Route: 048
     Dates: start: 20001013, end: 20050301
  3. AMIODARONE HCL [Concomitant]
     Indication: ATRIAL FIBRILLATION
     Route: 048
     Dates: start: 20020821, end: 20050401
  4. METOPROLOL SUCCINATE [Concomitant]
     Indication: BLOOD PRESSURE INCREASED
     Route: 048
     Dates: start: 20030101, end: 20050401
  5. PREDNISONE [Concomitant]
     Indication: RHEUMATOID ARTHRITIS
     Route: 048
     Dates: start: 19960517, end: 20050401
  6. METHOTREXATE [Concomitant]
     Indication: RHEUMATOID ARTHRITIS
     Route: 048
     Dates: start: 19940801, end: 20050401
  7. TORSEMIDE [Concomitant]
     Indication: HYPERTENSION
     Route: 048
     Dates: start: 20050301, end: 20050401
  8. ACETAZOLAMIDE [Concomitant]
     Indication: HYPERTENSION
     Route: 048
     Dates: start: 20050301, end: 20050401
  9. ACETAZOLAMIDE [Concomitant]
     Indication: RENAL FAILURE
  10. FOLIC ACID [Concomitant]
     Indication: VITAMIN SUPPLEMENTATION
     Route: 048
     Dates: start: 19940801, end: 20050401
  11. METOPROLOL TARTRATE [Concomitant]
     Indication: BLOOD PRESSURE INCREASED
     Route: 048
     Dates: start: 20050301, end: 20050401
  12. POTASSIUM CHLORIDE [Concomitant]
     Indication: MINERAL SUPPLEMENTATION
     Route: 048
     Dates: start: 19990618, end: 20050401
  13. DILTIAZEM HYDROCHLORIDE [Concomitant]
     Indication: BLOOD PRESSURE INCREASED
     Route: 048
     Dates: start: 20050301, end: 20050401
  14. INSULIN GLARGINE [Concomitant]
     Indication: DIABETES MELLITUS
     Route: 058
     Dates: start: 20050301, end: 20050401
  15. COUMADIN [Concomitant]
     Indication: ATRIAL FIBRILLATION
     Route: 048
     Dates: end: 20050401
  16. CALCITONIN-SALMON [Concomitant]
     Indication: OSTEOPOROSIS
     Dosage: ALTERNATING NOSTRILS
     Route: 045
     Dates: start: 20050301, end: 20050401

REACTIONS (3)
  - PNEUMONIA [None]
  - RENAL FAILURE [None]
  - SYSTEMIC INFLAMMATORY RESPONSE SYNDROME [None]
